FAERS Safety Report 7499147 (Version 6)
Quarter: 2018Q4

REPORT INFORMATION
  Report Type: Spontaneous
  Country: FR (occurrence: FR)
  Receive Date: 20100723
  Receipt Date: 20181029
  Transmission Date: 20190205
  Serious: Yes (Disabling, Other)
  Sender: FDA-Public Use
  Company Number: FR-PFIZER INC-2010086339

PATIENT
  Age: 56 Year
  Sex: Male
  Weight: 64.99 kg

DRUGS (4)
  1. LYRICA [Suspect]
     Active Substance: PREGABALIN
     Indication: NEURALGIA
     Dosage: 25 MG PER DAY
     Route: 048
     Dates: start: 20100601, end: 20100607
  2. ZELITREX [Concomitant]
     Active Substance: VALACYCLOVIR HYDROCHLORIDE
     Dosage: UNK
  3. LYRICA [Suspect]
     Active Substance: PREGABALIN
     Dosage: TWO CAPSULES (50 MG) A DAY
     Route: 048
     Dates: start: 20100609, end: 20100609
  4. KARDEGIC [Suspect]
     Active Substance: ASPIRIN DL-LYSINE
     Dosage: 300 MG A DAY
     Route: 048
     Dates: start: 20100525, end: 20100609

REACTIONS (4)
  - Hyperaesthesia [Not Recovered/Not Resolved]
  - Sarcoidosis [Unknown]
  - Toxic skin eruption [Recovering/Resolving]
  - Rash papular [Recovered/Resolved]

NARRATIVE: CASE EVENT DATE: 20100608
